FAERS Safety Report 19694387 (Version 1)
Quarter: 2021Q3

REPORT INFORMATION
  Report Type: Spontaneous
  Country: IT (occurrence: IT)
  Receive Date: 20210813
  Receipt Date: 20210813
  Transmission Date: 20211014
  Serious: Yes (Other)
  Sender: FDA-Public Use
  Company Number: IT-ACCORD-235133

PATIENT
  Age: 47 Year
  Sex: Female

DRUGS (2)
  1. TIGECYCLINE. [Suspect]
     Active Substance: TIGECYCLINE
     Indication: KLEBSIELLA BACTERAEMIA
  2. AMIKACIN. [Suspect]
     Active Substance: AMIKACIN
     Indication: KLEBSIELLA BACTERAEMIA

REACTIONS (2)
  - Renal impairment [Unknown]
  - Gastrointestinal disorder [Unknown]
